FAERS Safety Report 5142030-0 (Version None)
Quarter: 2006Q4

REPORT INFORMATION
  Report Type: 
  Country: None (occurrence: None)
  Receive Date: 20061102
  Receipt Date: 20060601
  Transmission Date: 20070319
  Serious: Yes (Other)
  Sender: FDA-Public Use
  Company Number: PHEH2006US07198

PATIENT
  Age: 48 Year
  Sex: Female

DRUGS (5)
  1. DECADRON                                /CAN/ [Concomitant]
     Dosage: 10MG Q21D
     Route: 042
  2. ZOMETA [Suspect]
     Indication: METASTASES TO BONE
     Dosage: 4 MG, Q4WK
     Dates: start: 20050524, end: 20060302
  3. TAXOTERE [Concomitant]
     Dosage: 132 MG D1 Q21D
     Dates: start: 20050601
  4. AVASTIN [Concomitant]
     Indication: BREAST CANCER
     Dosage: 990MG D1 Q21D
     Dates: start: 20050601
  5. XELODA [Concomitant]
     Indication: BREAST CANCER
     Dosage: 1500MG BID X14D
     Dates: start: 20050527

REACTIONS (7)
  - ABSCESS [None]
  - INFLAMMATION [None]
  - JAW OPERATION [None]
  - OSTEONECROSIS [None]
  - PAIN [None]
  - SEQUESTRECTOMY [None]
  - TOOTH EXTRACTION [None]
